FAERS Safety Report 10174729 (Version 2)
Quarter: 2014Q2

REPORT INFORMATION
  Report Type: Report from Study
  Country: ES (occurrence: ES)
  Receive Date: 20140515
  Receipt Date: 20140523
  Transmission Date: 20141212
  Serious: Yes (Other)
  Sender: FDA-Public Use
  Company Number: ES-PFIZER INC-2014130369

PATIENT
  Age: 84 Year
  Sex: Female

DRUGS (8)
  1. CARDURAN NEO [Suspect]
     Indication: HYPERTENSION
     Dosage: 8 MG, 1X/DAY
     Route: 048
     Dates: start: 201402
  2. LOSARTAN POTASSIUM W/HYDROCHLOROTHIAZIDE [Suspect]
     Indication: HYPERTENSION
     Dosage: 1 DF, 2X/DAY
     Route: 048
     Dates: start: 201402, end: 20140328
  3. CARVEDILOL [Concomitant]
     Dosage: 12.5 MG, 2X/DAY
     Route: 048
  4. ATORVASTATIN [Concomitant]
     Dosage: 80 MG, 1X/DAY
     Route: 048
  5. OMEPRAZOL [Concomitant]
     Dosage: 20 MG, 1X/DAY
     Route: 048
  6. DROGLICAN [Concomitant]
     Dosage: 1 DF, 2X/DAY
     Route: 048
  7. DUOPLAVIN [Concomitant]
     Dosage: 1 DF, 1X/DAY
     Route: 048
  8. HIDROFEROL [Concomitant]

REACTIONS (4)
  - Dizziness [Recovered/Resolved]
  - Vision blurred [Recovered/Resolved]
  - Pallor [Recovered/Resolved]
  - Hypotension [Recovered/Resolved]
